FAERS Safety Report 4675218-3 (Version None)
Quarter: 2005Q2

REPORT INFORMATION
  Report Type: 
  Country: None (occurrence: None)
  Receive Date: 20050526
  Receipt Date: 20050518
  Transmission Date: 20051028
  Serious: Yes (Other)
  Sender: FDA-Public Use
  Company Number: 2005060762

PATIENT
  Sex: Female

DRUGS (1)
  1. BEXTRA [Suspect]
     Indication: SURGERY
     Dates: start: 20041201

REACTIONS (3)
  - ALLERGY TO CHEMICALS [None]
  - HYPERSENSITIVITY [None]
  - PROCEDURAL SITE REACTION [None]
